FAERS Safety Report 6779065-8 (Version None)
Quarter: 2010Q2

REPORT INFORMATION
  Report Type: 
  Country: None (occurrence: None)
  Receive Date: 20100618
  Receipt Date: 20100607
  Transmission Date: 20101027
  Serious: Yes (Hospitalization)
  Sender: FDA-Public Use
  Company Number: DE-PFIZER INC-2010038667

PATIENT
  Age: 65 Year
  Sex: Male
  Weight: 85 kg

DRUGS (16)
  1. PREDNISOLONE [Suspect]
     Indication: PROSTATE CANCER METASTATIC
     Dosage: 5 MG, 2X/DAY
     Route: 048
     Dates: start: 20090826
  2. BLINDED *NO SUBJECT DRUG [Suspect]
     Indication: PROSTATE CANCER METASTATIC
     Dosage: 37.5 MG, 1X/DAY
     Route: 048
     Dates: start: 20090826
  3. BLINDED *PLACEBO [Suspect]
     Indication: PROSTATE CANCER METASTATIC
     Dosage: 37.5 MG, 1X/DAY
     Route: 048
     Dates: start: 20090826
  4. SUNITINIB MALATE [Suspect]
     Indication: PROSTATE CANCER METASTATIC
     Dosage: 37.5 MG, 1X/DAY
     Route: 048
     Dates: start: 20090826
  5. PANTOPRAZOL [Concomitant]
     Indication: PROPHYLAXIS AGAINST GASTROINTESTINAL ULCER
     Dosage: UNK
     Dates: start: 20090301
  6. PANTOPRAZOL [Concomitant]
     Indication: REFLUX OESOPHAGITIS
  7. CALCIUM [Concomitant]
     Dosage: UNK
     Dates: start: 20050601
  8. METOCLOPRAMIDE [Concomitant]
     Dosage: UNK
     Route: 048
     Dates: start: 20090301
  9. IBUPROFEN [Concomitant]
     Dosage: UNK
     Dates: start: 20090301
  10. ZOLEDRONIC ACID [Concomitant]
     Dosage: UNK
     Dates: start: 20050729
  11. METAMIZOL NATRIUM [Concomitant]
     Dosage: UNK
  12. ARANESP [Concomitant]
     Dosage: UNK
     Dates: start: 20090812
  13. MUCOFALK [Concomitant]
     Dosage: UNK
     Dates: start: 20090913
  14. TRENANTONE [Concomitant]
     Dosage: UNK
     Dates: start: 20070501
  15. GLYCEROL [Concomitant]
     Dosage: UNK
     Dates: start: 20091021
  16. DARBEPOETIN ALFA [Concomitant]
     Dosage: UNK
     Dates: start: 20100116

REACTIONS (1)
  - TRANSIENT ISCHAEMIC ATTACK [None]
